FAERS Safety Report 10068591 (Version 1)
Quarter: 2014Q2

REPORT INFORMATION
  Report Type: Spontaneous
  Country: US (occurrence: US)
  Receive Date: 20140409
  Receipt Date: 20140409
  Transmission Date: 20141212
  Serious: Yes (Death, Hospitalization, Other)
  Sender: FDA-Public Use
  Company Number: US-ELI_LILLY_AND_COMPANY-US201404001500

PATIENT
  Sex: Male

DRUGS (2)
  1. ALIMTA [Suspect]
     Indication: LUNG ADENOCARCINOMA METASTATIC
     Dosage: UNK
  2. CARBOPLATIN [Concomitant]

REACTIONS (8)
  - Death [Fatal]
  - Haemolytic anaemia [Unknown]
  - Platelet count decreased [Unknown]
  - Disseminated intravascular coagulation [Unknown]
  - Anaemia [Recovered/Resolved]
  - Thrombocytopenia [Recovered/Resolved]
  - Cerebrovascular accident [Unknown]
  - Off label use [Unknown]
